FAERS Safety Report 19153545 (Version 1)
Quarter: 2021Q2

REPORT INFORMATION
  Report Type: Spontaneous
  Country: BR (occurrence: BR)
  Receive Date: 20210419
  Receipt Date: 20210419
  Transmission Date: 20210717
  Serious: Yes (Hospitalization)
  Sender: FDA-Public Use
  Company Number: NVSC2021BR082926

PATIENT

DRUGS (7)
  1. TRAMETINIB [Suspect]
     Active Substance: TRAMETINIB
     Indication: PRODUCT USED FOR UNKNOWN INDICATION
     Dosage: UNK
     Route: 065
     Dates: start: 202009
  2. DABRAFENIB [Interacting]
     Active Substance: DABRAFENIB
     Indication: PRODUCT USED FOR UNKNOWN INDICATION
     Dosage: UNK
     Route: 065
     Dates: start: 202009
  3. DABRAFENIB [Interacting]
     Active Substance: DABRAFENIB
     Dosage: 100 MG, BID
     Route: 065
     Dates: start: 202101
  4. DABRAFENIB [Interacting]
     Active Substance: DABRAFENIB
     Dosage: 75 MG, BID
     Route: 065
     Dates: start: 202103
  5. TRAMETINIB [Suspect]
     Active Substance: TRAMETINIB
     Dosage: 75 MG, BID
     Route: 065
     Dates: start: 202103
  6. TRAMETINIB [Suspect]
     Active Substance: TRAMETINIB
     Dosage: 100 MG, BID
     Route: 065
     Dates: start: 202101
  7. ITRACONAZOLE. [Interacting]
     Active Substance: ITRACONAZOLE
     Indication: PRODUCT USED FOR UNKNOWN INDICATION
     Dosage: UNK
     Route: 065

REACTIONS (8)
  - Pyrexia [Unknown]
  - Dehydration [Unknown]
  - Nausea [Unknown]
  - Jaundice cholestatic [Unknown]
  - Vomiting [Unknown]
  - Hepatitis [Unknown]
  - Confusional state [Unknown]
  - Drug interaction [Unknown]

NARRATIVE: CASE EVENT DATE: 202012
